FAERS Safety Report 6840765-2 (Version None)
Quarter: 2010Q3

REPORT INFORMATION
  Report Type: 
  Country: None (occurrence: None)
  Receive Date: 20100714
  Receipt Date: 20100702
  Transmission Date: 20110219
  Serious: Yes (Hospitalization, Other)
  Sender: FDA-Public Use
  Company Number: US-ELI_LILLY_AND_COMPANY-US201006003197

PATIENT
  Sex: Female

DRUGS (13)
  1. FORTEO [Suspect]
     Indication: OSTEOPOROSIS
     Dosage: 20 UG, DAILY (1/D)
     Dates: start: 20091001
  2. COUMADIN [Concomitant]
  3. OXYCONTIN [Concomitant]
  4. ARICEPT [Concomitant]
  5. AROMASIN [Concomitant]
  6. DETROL LA [Concomitant]
  7. METOPROLOL [Concomitant]
  8. DIGOXIN [Concomitant]
  9. MEVACOR [Concomitant]
  10. MAGNESIUM [Concomitant]
  11. TOPROL-XL [Concomitant]
  12. POTASSIUM CHLORIDE [Concomitant]
  13. PERCOCET [Concomitant]

REACTIONS (6)
  - BLOOD CALCIUM INCREASED [None]
  - CONTUSION [None]
  - LOSS OF CONSCIOUSNESS [None]
  - ORTHOSTATIC HYPOTENSION [None]
  - PRESYNCOPE [None]
  - ROAD TRAFFIC ACCIDENT [None]
